FAERS Safety Report 6107520-2 (Version None)
Quarter: 2009Q1

REPORT INFORMATION
  Report Type: 
  Country: None (occurrence: None)
  Receive Date: 20090309
  Receipt Date: 20090306
  Transmission Date: 20090719
  Serious: Yes (Life-Threatening, Hospitalization)
  Sender: FDA-Public Use
  Company Number: CH-JNJFOC-20090301402

PATIENT
  Age: 74 Year
  Sex: Male

DRUGS (10)
  1. RISPERDAL [Suspect]
     Indication: DRUG USE FOR UNKNOWN INDICATION
     Route: 048
  2. HALDOL [Suspect]
     Indication: DRUG USE FOR UNKNOWN INDICATION
     Route: 048
  3. REMERON [Suspect]
     Indication: DRUG USE FOR UNKNOWN INDICATION
     Route: 048
  4. DISTRANEURIN [Suspect]
     Indication: DRUG USE FOR UNKNOWN INDICATION
     Route: 048
  5. TRANXILIUM [Suspect]
     Indication: DRUG USE FOR UNKNOWN INDICATION
     Route: 048
  6. VANCOMYCIN HCL [Suspect]
     Indication: DRUG USE FOR UNKNOWN INDICATION
     Route: 042
  7. TRIATEC [Concomitant]
     Route: 048
  8. TENORMIN [Concomitant]
     Route: 048
  9. PRAVASTATIN [Concomitant]
     Route: 048
  10. MARCUMAR [Concomitant]
     Route: 048

REACTIONS (2)
  - CARDIAC ARREST [None]
  - VENTRICULAR FIBRILLATION [None]
